FAERS Safety Report 6812665-5 (Version None)
Quarter: 2010Q3

REPORT INFORMATION
  Report Type: 
  Country: None (occurrence: None)
  Receive Date: 20100701
  Receipt Date: 20100629
  Transmission Date: 20110219
  Serious: Yes (Death)
  Sender: FDA-Public Use
  Company Number: CH-ROCHE-706795

PATIENT
  Sex: Male
  Weight: 85 kg

DRUGS (11)
  1. BEVACIZUMAB [Suspect]
     Dosage: FORM: INFUSION
     Route: 042
     Dates: start: 20100510
  2. CAPECITABINE [Suspect]
     Route: 048
     Dates: start: 20100510
  3. IRINOTECAN HCL [Suspect]
     Dosage: FORM: INFUSION
     Route: 042
     Dates: start: 20100510
  4. ACETYLSALICYLIC ACID [Concomitant]
     Dates: start: 20090611
  5. BISOPROLOL FUMARATE [Concomitant]
     Dates: start: 20090611
  6. SIMVASTATIN [Concomitant]
     Dates: start: 20090611
  7. METFORMIN HCL [Concomitant]
     Dates: start: 20010101
  8. AMLODIPINE [Concomitant]
     Dates: start: 20090611
  9. VALSARTAN [Concomitant]
     Dates: start: 20090611
  10. FINASTERIDE [Concomitant]
     Dates: start: 20091209
  11. VILDAGLIPTINE [Concomitant]
     Dates: start: 20091204

REACTIONS (1)
  - UPPER GASTROINTESTINAL HAEMORRHAGE [None]
